FAERS Safety Report 8033212-9 (Version None)
Quarter: 2011Q4

REPORT INFORMATION
  Report Type: 
  Country: None (occurrence: None)
  Receive Date: 20111228
  Receipt Date: 20111214
  Transmission Date: 20120403
  Serious: Yes (Other)
  Sender: FDA-Public Use
  Company Number: 2011SP058674

PATIENT
  Sex: Male
  Weight: 74.8435 kg

DRUGS (3)
  1. PEG-INTRON [Suspect]
     Indication: HEPATITIS C
     Dates: start: 20110902
  2. RIBAVIRIN [Suspect]
     Indication: HEPATITIS C
     Dates: start: 20110902
  3. BOCEPREVIR [Suspect]
     Indication: HEPATITIS C
     Dates: start: 20110930

REACTIONS (11)
  - DISEASE RECURRENCE [None]
  - POLLAKIURIA [None]
  - DIZZINESS [None]
  - INSOMNIA [None]
  - DYSGEUSIA [None]
  - WHITE BLOOD CELL COUNT DECREASED [None]
  - DYSSTASIA [None]
  - DECREASED APPETITE [None]
  - BLOOD GLUCOSE INCREASED [None]
  - INJECTION SITE ERYTHEMA [None]
  - ARTHROPATHY [None]
